FAERS Safety Report 14667193 (Version 2)
Quarter: 2018Q2

REPORT INFORMATION
  Report Type: Spontaneous
  Country: CN (occurrence: CN)
  Receive Date: 20180322
  Receipt Date: 20180413
  Transmission Date: 20180711
  Serious: No
  Sender: FDA-Public Use
  Company Number: CN-ASTRAZENECA-2018SE34387

PATIENT
  Age: 82 Year
  Sex: Female

DRUGS (3)
  1. TELMISARTAN. [Concomitant]
     Active Substance: TELMISARTAN
     Indication: DIABETES MELLITUS
     Dosage: 1 TABLET QD
     Route: 048
  2. SYMBICORT [Suspect]
     Active Substance: BUDESONIDE\FORMOTEROL FUMARATE DIHYDRATE
     Indication: CHRONIC OBSTRUCTIVE PULMONARY DISEASE
     Dosage: 160UG 2 INHALATIONS TWO TIMES A DAY VIA
     Route: 055
     Dates: start: 20180314
  3. GLUCOBAY [Concomitant]
     Active Substance: ACARBOSE
     Dosage: 1 TABLET QD
     Route: 048

REACTIONS (1)
  - Wrong technique in product usage process [Unknown]
